FAERS Safety Report 17470084 (Version 4)
Quarter: 2020Q3

REPORT INFORMATION
  Report Type: Spontaneous
  Country: NO (occurrence: NO)
  Receive Date: 20200227
  Receipt Date: 20200728
  Transmission Date: 20201102
  Serious: Yes (Hospitalization, Other)
  Sender: FDA-Public Use
  Company Number: NO-JNJFOC-20200228400

PATIENT
  Age: 32 Year
  Sex: Male

DRUGS (8)
  1. INFLECTRA [Suspect]
     Active Substance: INFLIXIMAB-DYYB
     Route: 065
     Dates: start: 20160422, end: 2016
  2. INFLECTRA [Suspect]
     Active Substance: INFLIXIMAB-DYYB
     Indication: COLITIS ULCERATIVE
     Route: 065
     Dates: start: 20160523, end: 20161109
  3. BUDESONIDE. [Concomitant]
     Active Substance: BUDESONIDE
     Indication: PRODUCT USED FOR UNKNOWN INDICATION
     Route: 048
  4. REMICADE [Suspect]
     Active Substance: INFLIXIMAB
     Route: 042
     Dates: start: 2015, end: 201611
  5. REMSIMA [Suspect]
     Active Substance: INFLIXIMAB
     Indication: COLITIS ULCERATIVE
     Route: 065
     Dates: start: 201512, end: 20160318
  6. REMSIMA [Suspect]
     Active Substance: INFLIXIMAB
     Dosage: WEEK 0, 2 AND 6;
     Route: 065
     Dates: start: 20151012, end: 201511
  7. REMICADE [Suspect]
     Active Substance: INFLIXIMAB
     Indication: COLITIS ULCERATIVE
     Dosage: 5 MG/KG, WEEK 0, 2 AND 6; CYCLICAL
     Route: 042
     Dates: start: 201510
  8. PREDNISOLONE. [Concomitant]
     Active Substance: PREDNISOLONE
     Indication: PRODUCT USED FOR UNKNOWN INDICATION
     Dosage: 10?20 MG DAILY, DOSE TAPPERED DOWN
     Route: 065

REACTIONS (5)
  - Therapeutic product effect incomplete [Unknown]
  - Colon neoplasm [Recovered/Resolved with Sequelae]
  - Dysplasia [Unknown]
  - Off label use [Unknown]
  - Large intestine polyp [Recovered/Resolved with Sequelae]

NARRATIVE: CASE EVENT DATE: 2016
